FAERS Safety Report 4357372-6 (Version None)
Quarter: 2004Q2

REPORT INFORMATION
  Report Type: 
  Country: None (occurrence: None)
  Receive Date: 20040513
  Receipt Date: 20040504
  Transmission Date: 20050107
  Serious: Yes (Hospitalization)
  Sender: FDA-Public Use
  Company Number: GB-BRISTOL-MYERS SQUIBB COMPANY-12577938

PATIENT
  Age: 64 Year
  Sex: Female
  Weight: 68 kg

DRUGS (7)
  1. CISPLATIN [Suspect]
     Indication: CERVIX CARCINOMA STAGE 0
     Route: 042
     Dates: start: 20040209, end: 20040216
  2. CLOPIDOGREL BISULFATE [Concomitant]
     Indication: CORONARY ARTERY DISEASE
     Route: 048
  3. TILDIEM [Concomitant]
     Indication: CORONARY ARTERY DISEASE
     Route: 048
  4. ATORVASTATIN CALCIUM [Concomitant]
     Indication: CORONARY ARTERY DISEASE
     Route: 048
  5. RAMIPRIL [Concomitant]
     Indication: MYOCARDIAL INFARCTION
     Route: 048
  6. TAMOXIFEN CITRATE [Concomitant]
     Indication: BREAST CANCER
     Route: 048
  7. ISOSORBIDE MONONITRATE [Concomitant]

REACTIONS (1)
  - ARTERIOSPASM CORONARY [None]
